FAERS Safety Report 9775191 (Version 1)
Quarter: 2013Q4

REPORT INFORMATION
  Report Type: Spontaneous
  Country: US (occurrence: None)
  Receive Date: 20131219
  Receipt Date: 20131219
  Transmission Date: 20140711
  Serious: Yes (Life-Threatening)
  Sender: FDA-Public Use
  Company Number: None

PATIENT
  Age: 60 Year
  Sex: Male
  Weight: 81.65 kg

DRUGS (1)
  1. JOCK ITCH SPRAY [Suspect]
     Indication: SCROTAL ERYTHEMA
     Dates: start: 20131202, end: 20131204

REACTIONS (1)
  - Staphylococcal infection [None]
